FAERS Safety Report 17841896 (Version 1)
Quarter: 2020Q2

REPORT INFORMATION
  Report Type: Spontaneous
  Country: HR (occurrence: HR)
  Receive Date: 20200529
  Receipt Date: 20200529
  Transmission Date: 20200714
  Serious: Yes (Other)
  Sender: FDA-Public Use
  Company Number: HR-PFIZER INC-2020212319

PATIENT
  Sex: Female

DRUGS (6)
  1. PREGABALIN. [Suspect]
     Active Substance: PREGABALIN
     Dosage: UNK
     Route: 048
  2. FLUZEPAM [FLURAZEPAM HYDROCHLORIDE] [Suspect]
     Active Substance: FLURAZEPAM HYDROCHLORIDE
     Dosage: UNK
     Route: 048
  3. CALIXTA [Suspect]
     Active Substance: MIRTAZAPINE
     Dosage: UNK
     Route: 048
  4. KVETIAPIN XR PHARMAS [Suspect]
     Active Substance: QUETIAPINE FUMARATE
     Dosage: UNK
     Route: 048
  5. ZELDOX [Suspect]
     Active Substance: ZIPRASIDONE
     Dosage: UNK
     Route: 048
  6. DIAZEPAM. [Suspect]
     Active Substance: DIAZEPAM
     Dosage: UNK
     Route: 048

REACTIONS (4)
  - Unresponsive to stimuli [Unknown]
  - Intentional overdose [Unknown]
  - Suicide attempt [Unknown]
  - Coma [Unknown]

NARRATIVE: CASE EVENT DATE: 20200101
